FAERS Safety Report 8227503-6 (Version None)
Quarter: 2012Q1

REPORT INFORMATION
  Report Type: 
  Country: None (occurrence: None)
  Receive Date: 20120322
  Receipt Date: 20120315
  Transmission Date: 20120608
  Serious: Yes (Other)
  Sender: FDA-Public Use
  Company Number: PHEH2012US005923

PATIENT
  Sex: Female

DRUGS (12)
  1. TRIAMTERENE AND HYDROCHLOROTHIAZID [Concomitant]
     Dosage: 1 DF (37.5MG/25MG), QD
  2. RECLAST [Suspect]
     Dosage: UNK UKN, YEARLY
     Route: 042
  3. DIOVAN [Concomitant]
     Dosage: 160 MG, QD
  4. CITRUCEL [Concomitant]
  5. SYNTHROID [Concomitant]
     Dosage: 150 UG, QD
  6. PREVACID [Concomitant]
     Dosage: 30 MG, BID
  7. MULTIVITAMIN [Concomitant]
  8. CALCIUM CARBONATE [Concomitant]
  9. FISH OIL [Concomitant]
  10. CRESTOR [Concomitant]
     Dosage: 5 MG, QD
  11. DICYCLOMINE [Concomitant]
     Dosage: 10 MG, QD
  12. DILTIAZEM HCL [Concomitant]
     Dosage: 180 MG, BID

REACTIONS (6)
  - DEHYDRATION [None]
  - FALL [None]
  - FATIGUE [None]
  - FOOT FRACTURE [None]
  - MUSCLE SPASMS [None]
  - MOBILITY DECREASED [None]
